FAERS Safety Report 20414935 (Version 3)
Quarter: 2022Q1

REPORT INFORMATION
  Report Type: Spontaneous
  Country: NL (occurrence: NL)
  Receive Date: 20220202
  Receipt Date: 20220228
  Transmission Date: 20220424
  Serious: Yes (Hospitalization)
  Sender: FDA-Public Use
  Company Number: NL-LEO Pharma-340517

PATIENT
  Age: 34 Year
  Sex: Female

DRUGS (8)
  1. TRALOKINUMAB [Suspect]
     Active Substance: TRALOKINUMAB
     Indication: Eczema
     Route: 058
     Dates: start: 20211221
  2. TRALOKINUMAB [Suspect]
     Active Substance: TRALOKINUMAB
     Indication: Eczema
     Route: 058
     Dates: start: 20211221
  3. TRALOKINUMAB [Suspect]
     Active Substance: TRALOKINUMAB
     Indication: Eczema
     Dosage: 2X150MG SOLUTION FOR INJECTION
     Route: 058
     Dates: start: 20220104
  4. TRALOKINUMAB [Suspect]
     Active Substance: TRALOKINUMAB
     Indication: Eczema
     Dosage: 2X150MG SOLUTION FOR INJECTION
     Route: 058
     Dates: start: 20220104
  5. DEVICE [Suspect]
     Active Substance: DEVICE
     Indication: Eczema
  6. PREDNISONE [Concomitant]
     Active Substance: PREDNISONE
     Indication: Dermatitis atopic
     Dates: start: 2016, end: 2018
  7. DUPILUMAB [Concomitant]
     Active Substance: DUPILUMAB
     Indication: Dermatitis atopic
     Dosage: DUPILUMAB 300MG/2 WEEKS
     Dates: start: 20210208, end: 20211021
  8. COVID-19 vaccine [Concomitant]
     Indication: COVID-19 prophylaxis
     Dates: start: 20220103

REACTIONS (4)
  - Pharyngeal swelling [Unknown]
  - Swollen tongue [Unknown]
  - Swollen tongue [Unknown]
  - Pharyngeal swelling [Unknown]

NARRATIVE: CASE EVENT DATE: 20220104
